FAERS Safety Report 8942522 (Version 1)
Quarter: 2012Q4

REPORT INFORMATION
  Report Type: Spontaneous
  Country: JP (occurrence: None)
  Receive Date: 20121123
  Receipt Date: 20121123
  Transmission Date: 20130627
  Serious: Yes (Other)
  Sender: FDA-Public Use
  Company Number: DSA_60975_2012

PATIENT

DRUGS (3)
  1. FLUOROURACIL (FLUOROURACIL) [Suspect]
     Indication: HEAD AND NECK CANCER
     Dosage: (750  mg/m2 on day 1-5,  every three weeks)
(Unknown until not continuing)
  2. CISPLATIN [Suspect]
     Dosage: (75  mg/m2  on day 1,  every three weeks)
(Unknown until not continuing)
  3. DOCETAXEL [Suspect]
     Dosage: (60  mg/m2  on day 1,  every three weeks)
(Unknown until not continuing)

REACTIONS (1)
  - Dysphagia [None]
